FAERS Safety Report 10295754 (Version 1)
Quarter: 2014Q3

REPORT INFORMATION
  Report Type: Spontaneous
  Country: US (occurrence: None)
  Receive Date: 20140709
  Receipt Date: 20140709
  Transmission Date: 20150326
  Serious: Yes (Hospitalization)
  Sender: FDA-Public Use
  Company Number: DL2014-0306

PATIENT
  Age: 19 Year
  Sex: Female

DRUGS (3)
  1. DOXYCYCLINE. [Concomitant]
     Active Substance: DOXYCYCLINE
  2. MIFEPRISTONE [Suspect]
     Active Substance: MIFEPRISTONE
     Indication: ABORTION INDUCED
     Route: 048
     Dates: start: 20131206
  3. MISOPROSTOL. [Suspect]
     Active Substance: MISOPROSTOL
     Route: 002

REACTIONS (2)
  - Haemorrhage [None]
  - Dizziness [None]

NARRATIVE: CASE EVENT DATE: 20140107
